FAERS Safety Report 7703608-0 (Version None)
Quarter: 2011Q3

REPORT INFORMATION
  Report Type: 
  Country: None (occurrence: None)
  Receive Date: 20110823
  Receipt Date: 20110816
  Transmission Date: 20111222
  Serious: Yes (Hospitalization, Other)
  Sender: FDA-Public Use
  Company Number: PHHY2011BR73594

PATIENT
  Age: 11 Year
  Sex: Male

DRUGS (2)
  1. TEGRETOL [Suspect]
     Dosage: UNK UKN, UNK
  2. TEGRETOL [Suspect]
     Dosage: UNK UKN, UNK

REACTIONS (2)
  - CONVULSION [None]
  - DIABETES MELLITUS [None]
